FAERS Safety Report 24925611 (Version 1)
Quarter: 2025Q1

REPORT INFORMATION
  Report Type: Spontaneous
  Country: US (occurrence: US)
  Receive Date: 20250204
  Receipt Date: 20250204
  Transmission Date: 20250409
  Serious: No
  Sender: BRISTOL-MYERS SQUIBB COMPANY
  Company Number: US-BRISTOL-MYERS SQUIBB COMPANY-2025-014616

PATIENT
  Age: 52 Year
  Sex: Female

DRUGS (1)
  1. APIXABAN [Suspect]
     Active Substance: APIXABAN
     Indication: Deep vein thrombosis
     Route: 048

REACTIONS (1)
  - Vaginal haemorrhage [Unknown]
